FAERS Safety Report 10009111 (Version 1)
Quarter: 2014Q1

REPORT INFORMATION
  Report Type: Report from Study
  Country: US (occurrence: US)
  Receive Date: 20140313
  Receipt Date: 20140313
  Transmission Date: 20141002
  Serious: Yes (Congenital Anomaly, Other)
  Sender: FDA-Public Use
  Company Number: PHEH2014US004933

PATIENT
  Age: 14 Year
  Sex: Female
  Weight: 46.71 kg

DRUGS (3)
  1. TOBI PODHALER [Suspect]
     Indication: CYSTIC FIBROSIS
     Dosage: 112 MG, BID
     Route: 055
     Dates: start: 201312
  2. TOBI PODHALER [Suspect]
     Indication: PSEUDOMONAS INFECTION
  3. CAYSTON [Concomitant]
     Dosage: UNK

REACTIONS (4)
  - Abnormal behaviour [Not Recovered/Not Resolved]
  - Intentional self-injury [Not Recovered/Not Resolved]
  - Weight increased [Not Recovered/Not Resolved]
  - Cough [Not Recovered/Not Resolved]
